FAERS Safety Report 6794081-8 (Version None)
Quarter: 2010Q2

REPORT INFORMATION
  Report Type: 
  Country: None (occurrence: None)
  Receive Date: 20100624
  Receipt Date: 20091113
  Transmission Date: 20101027
  Serious: Yes (Death)
  Sender: FDA-Public Use
  Company Number: IT-PFIZER INC-2009291538

PATIENT
  Sex: Male

DRUGS (1)
  1. UNASYN [Suspect]
     Indication: ANTIBIOTIC PROPHYLAXIS
     Dosage: 3 G, TOTAL
     Route: 042
     Dates: start: 20091027, end: 20091027

REACTIONS (3)
  - CHEST PAIN [None]
  - EPILEPSY [None]
  - HYPOTENSION [None]
